FAERS Safety Report 4484081-5 (Version None)
Quarter: 2004Q4

REPORT INFORMATION
  Report Type: 
  Country: None (occurrence: None)
  Receive Date: 20041025
  Receipt Date: 20041012
  Transmission Date: 20050328
  Serious: Yes (Life-Threatening, Hospitalization)
  Sender: FDA-Public Use
  Company Number: AT-JNJFOC-20041003915

PATIENT
  Age: 78 Year
  Sex: Male
  Weight: 91 kg

DRUGS (3)
  1. REMICADE [Suspect]
     Route: 042
  2. PLAVIX [Concomitant]
  3. METHOTREXATE [Concomitant]
     Route: 049

REACTIONS (4)
  - CARBOHYDRATE ANTIGEN 19-9 INCREASED [None]
  - CHOLESTASIS [None]
  - HEPATIC NEOPLASM MALIGNANT [None]
  - HEPATOCELLULAR DAMAGE [None]
